FAERS Safety Report 8220050-7 (Version None)
Quarter: 2012Q1

REPORT INFORMATION
  Report Type: 
  Country: None (occurrence: None)
  Receive Date: 20120320
  Receipt Date: 20120302
  Transmission Date: 20120608
  Serious: Yes (Other)
  Sender: FDA-Public Use
  Company Number: US-ROCHE-1039022

PATIENT
  Sex: Female

DRUGS (5)
  1. NOVOLIN 70/30 [Concomitant]
  2. OMALIZUMAB [Suspect]
     Indication: ASTHMA
     Route: 058
     Dates: start: 20111127
  3. ADVAIR DISKUS 100/50 [Concomitant]
  4. SINGULAIR [Concomitant]
  5. ALBUTEROL [Concomitant]

REACTIONS (3)
  - CHEST DISCOMFORT [None]
  - DYSPNOEA [None]
  - URTICARIA [None]
